FAERS Safety Report 9832581 (Version 1)
Quarter: 2014Q1

REPORT INFORMATION
  Report Type: Spontaneous
  Country: FR (occurrence: FR)
  Receive Date: 20140121
  Receipt Date: 20140121
  Transmission Date: 20141002
  Serious: Yes (Hospitalization)
  Sender: FDA-Public Use
  Company Number: FR-PFIZER INC-2014015975

PATIENT
  Age: 62 Year
  Sex: Male

DRUGS (6)
  1. CORDARONE [Suspect]
     Dosage: 200 MG, UNK
     Route: 048
  2. PRADAXA [Interacting]
     Indication: THROMBOSIS PROPHYLAXIS
     Dosage: 110 MG, DAILY
     Route: 048
     Dates: start: 20130309, end: 20130418
  3. TARCEVA [Concomitant]
     Dosage: UNK
  4. PAROXETINE [Concomitant]
     Dosage: UNK
  5. ATARAX [Concomitant]
     Dosage: UNK
  6. LEVOTHYROX [Concomitant]
     Dosage: UNK

REACTIONS (3)
  - Drug interaction [Recovered/Resolved]
  - Drug ineffective [Recovered/Resolved]
  - Thrombophlebitis [Recovered/Resolved]
